FAERS Safety Report 22612941 (Version 2)
Quarter: 2023Q2

REPORT INFORMATION
  Report Type: Spontaneous
  Country: US (occurrence: None)
  Receive Date: 20230618
  Receipt Date: 20230621
  Transmission Date: 20230721
  Serious: No
  Sender: FDA-Public Use
  Company Number: 2023A139077

PATIENT
  Sex: Male

DRUGS (2)
  1. BYDUREON BCISE [Suspect]
     Active Substance: EXENATIDE
     Route: 058
     Dates: start: 20230604
  2. BYDUREON [Suspect]
     Active Substance: EXENATIDE

REACTIONS (4)
  - Hypoacusis [Unknown]
  - Drug dose omission by device [Unknown]
  - Product use issue [Unknown]
  - Device leakage [Unknown]
